FAERS Safety Report 25987044 (Version 1)
Quarter: 2025Q4

REPORT INFORMATION
  Report Type: Spontaneous
  Country: TW (occurrence: TW)
  Receive Date: 20251103
  Receipt Date: 20251103
  Transmission Date: 20260117
  Serious: Yes (Other)
  Sender: AMNEAL
  Company Number: TW-AMNEAL PHARMACEUTICALS-2025-AMRX-04173

PATIENT
  Age: 73 Year
  Sex: Male

DRUGS (1)
  1. AZATHIOPRINE [Suspect]
     Active Substance: AZATHIOPRINE
     Indication: Systemic lupus erythematosus
     Dosage: FOR 6 WEEKS
     Route: 065

REACTIONS (1)
  - Hepatitis cholestatic [Recovering/Resolving]
